FAERS Safety Report 4533797-0 (Version None)
Quarter: 2004Q4

REPORT INFORMATION
  Report Type: 
  Country: None (occurrence: None)
  Receive Date: 20041221
  Receipt Date: 20040603
  Transmission Date: 20050328
  Serious: Yes (Death, Life-Threatening, Hospitalization)
  Sender: FDA-Public Use
  Company Number: JP-MERCK-0406USA00672

PATIENT
  Age: 61 Year
  Sex: Female

DRUGS (3)
  1. PEPCID RPD [Suspect]
     Route: 048
     Dates: start: 20040518
  2. PARIET [Suspect]
     Route: 048
     Dates: start: 20040508
  3. BUSCOPAN [Suspect]
     Route: 048
     Dates: start: 20040508

REACTIONS (6)
  - ACUTE RESPIRATORY DISTRESS SYNDROME [None]
  - HEPATITIS ACUTE [None]
  - HEPATITIS FULMINANT [None]
  - INTERSTITIAL LUNG DISEASE [None]
  - LOSS OF CONSCIOUSNESS [None]
  - RESPIRATORY FAILURE [None]
